FAERS Safety Report 5019626-X (Version None)
Quarter: 2006Q2

REPORT INFORMATION
  Report Type: 
  Country: None (occurrence: None)
  Receive Date: 20060601
  Receipt Date: 20060524
  Transmission Date: 20061013
  Serious: Yes (Hospitalization)
  Sender: FDA-Public Use
  Company Number: HQWYE548325MAY06

PATIENT
  Age: 65 Year
  Sex: Male

DRUGS (2)
  1. RAPAMUNE [Suspect]
     Indication: PROPHYLAXIS AGAINST TRANSPLANT REJECTION
     Dosage: ADJUSTED FOR LEVEL, ORAL
     Route: 048
     Dates: start: 20060519, end: 20060523
  2. CELLCEPT [Concomitant]

REACTIONS (5)
  - ACUTE MYOCARDIAL INFARCTION [None]
  - BLOOD LACTATE DEHYDROGENASE INCREASED [None]
  - BLOOD UREA INCREASED [None]
  - CORONARY ARTERY OCCLUSION [None]
  - IMMUNOSUPPRESSANT DRUG LEVEL INCREASED [None]
